FAERS Safety Report 4668727-4 (Version None)
Quarter: 2005Q2

REPORT INFORMATION
  Report Type: 
  Country: None (occurrence: None)
  Receive Date: 20050519
  Receipt Date: 20050506
  Transmission Date: 20051028
  Serious: Yes (Hospitalization, Other)
  Sender: FDA-Public Use
  Company Number: 2005004072

PATIENT
  Age: 76 Year
  Sex: Male
  Weight: 83.9154 kg

DRUGS (7)
  1. VIAGRA [Suspect]
     Indication: ILL-DEFINED DISORDER
     Dosage: 50 MG, ORAL
     Route: 048
     Dates: start: 20030101
  2. PROSCAR [Concomitant]
  3. GLUCOPHAGE [Concomitant]
  4. SIMVASTATIN [Concomitant]
  5. FLUVASTATIN (FLUVASTATIN) [Concomitant]
  6. VITAMINS (VITAMINS) [Concomitant]
  7. ALLERGY MEDICATION (ALLERGY MEDICATION) [Concomitant]

REACTIONS (9)
  - ARTHRITIS [None]
  - ASTHENIA [None]
  - CERVICAL VERTEBRAL FRACTURE [None]
  - CONDITION AGGRAVATED [None]
  - DRUG INEFFECTIVE [None]
  - FALL [None]
  - HYPOAESTHESIA [None]
  - MONOPLEGIA [None]
  - SPINAL CORD COMPRESSION [None]
